FAERS Safety Report 5730905-0 (Version None)
Quarter: 2008Q2

REPORT INFORMATION
  Report Type: 
  Country: None (occurrence: None)
  Receive Date: 20080502
  Receipt Date: 20080424
  Transmission Date: 20081010
  Serious: Yes (Hospitalization)
  Sender: FDA-Public Use
  Company Number: 2008BI008878

PATIENT
  Age: 60 Year
  Sex: Female

DRUGS (1)
  1. AVONEX [Suspect]
     Indication: MULTIPLE SCLEROSIS
     Dosage: 30 UG; QW; IM
     Route: 030
     Dates: start: 20010106

REACTIONS (5)
  - INCISIONAL HERNIA [None]
  - MULTIPLE-DRUG RESISTANCE [None]
  - POSTOPERATIVE WOUND INFECTION [None]
  - PULMONARY EMBOLISM [None]
  - WOUND INFECTION STAPHYLOCOCCAL [None]
